FAERS Safety Report 4842432-3 (Version None)
Quarter: 2005Q4

REPORT INFORMATION
  Report Type: 
  Country: None (occurrence: None)
  Receive Date: 20051129
  Receipt Date: 20051116
  Transmission Date: 20060501
  Serious: Yes (Hospitalization, Other)
  Sender: FDA-Public Use
  Company Number: USA-2004-0013500

PATIENT
  Age: 53 Year
  Sex: Female
  Weight: 72.6 kg

DRUGS (31)
  1. OXYCONTIN [Suspect]
     Dosage: SEE IMAGE
     Dates: start: 20001001, end: 20030301
  2. OXYCODONE HCL [Suspect]
     Dates: start: 20001001, end: 20030301
  3. PERCOCET [Suspect]
     Dates: start: 20001001, end: 20030301
  4. DETROL [Concomitant]
  5. PRILOSEC [Concomitant]
  6. NEURONTIN [Concomitant]
  7. SULFASALAZINE [Concomitant]
  8. ENBREL [Concomitant]
  9. AMITRIPTYLINE HCL [Concomitant]
  10. EVISTA [Concomitant]
  11. IMIPRAMINE [Concomitant]
  12. NASAREL (FLUNISOLIDE) [Concomitant]
  13. MONOPRIL [Concomitant]
  14. CELEBREX [Concomitant]
  15. NEURONTIN [Concomitant]
  16. AMBIEN [Concomitant]
  17. PROZAC [Concomitant]
  18. FLONASE [Concomitant]
  19. FOSAMAX [Concomitant]
  20. CLARITIN [Concomitant]
  21. PREVACID [Concomitant]
  22. MAALOX (MAGNESIUM HYDROXIDE, ALUMINUM HYDROXIDE GEL) [Concomitant]
  23. EFFEXOR [Concomitant]
  24. CARAFATE [Concomitant]
  25. DAYPRO [Concomitant]
  26. CORTIZONE (HYDROCORTISONE) [Concomitant]
  27. PREDNISONE [Concomitant]
  28. METHOTREXATE [Concomitant]
  29. PIROXICAM [Concomitant]
  30. METHOCARBAMOL [Concomitant]
  31. AMARYL [Concomitant]

REACTIONS (62)
  - ABASIA [None]
  - ABDOMINAL PAIN [None]
  - ABDOMINAL PAIN UPPER [None]
  - AFFECT LABILITY [None]
  - ALOPECIA [None]
  - ANGER [None]
  - ANXIETY [None]
  - ARTHRALGIA [None]
  - AUTOIMMUNE DISORDER [None]
  - BACK PAIN [None]
  - BURSITIS [None]
  - COMMUNICATION DISORDER [None]
  - CONFUSIONAL STATE [None]
  - CONSTIPATION [None]
  - DEPRESSION [None]
  - DIVERTICULITIS [None]
  - DRUG ABUSER [None]
  - DRUG DEPENDENCE [None]
  - DRUG EFFECT DECREASED [None]
  - DRUG WITHDRAWAL SYNDROME [None]
  - DRY MOUTH [None]
  - DYSPHAGIA [None]
  - DYSURIA [None]
  - FAT TISSUE INCREASED [None]
  - FLAT AFFECT [None]
  - FLATULENCE [None]
  - GENITAL DISORDER FEMALE [None]
  - HELICOBACTER INFECTION [None]
  - IMPAIRED GASTRIC EMPTYING [None]
  - INSOMNIA [None]
  - INTERNAL HERNIA [None]
  - MASTICATION DISORDER [None]
  - MENTAL DISORDER [None]
  - MENTAL IMPAIRMENT [None]
  - MICTURITION URGENCY [None]
  - MOOD SWINGS [None]
  - NAUSEA [None]
  - NEURALGIA [None]
  - NOCTURIA [None]
  - NODULE [None]
  - OBTURATOR HERNIA [None]
  - OESOPHAGITIS [None]
  - ORAL PAIN [None]
  - OSTEOARTHRITIS [None]
  - OSTEOPENIA [None]
  - OVARIAN ABSCESS [None]
  - OVARIAN CYST [None]
  - PAIN [None]
  - PAIN IN EXTREMITY [None]
  - PELVIC PAIN [None]
  - POLLAKIURIA [None]
  - POLYSUBSTANCE ABUSE [None]
  - RHINITIS [None]
  - STRESS INCONTINENCE [None]
  - SUICIDAL IDEATION [None]
  - TENDERNESS [None]
  - TREMOR [None]
  - URINARY HESITATION [None]
  - URINARY RETENTION [None]
  - URINARY TRACT DISORDER [None]
  - WEIGHT DECREASED [None]
  - WEIGHT INCREASED [None]
